FAERS Safety Report 24670018 (Version 1)
Quarter: 2024Q4

REPORT INFORMATION
  Report Type: Spontaneous
  Country: US (occurrence: None)
  Receive Date: 20241126
  Receipt Date: 20241126
  Transmission Date: 20250115
  Serious: Yes (Other)
  Sender: Public
  Company Number: None

PATIENT
  Age: 38 Year
  Sex: Female
  Weight: 85.5 kg

DRUGS (12)
  1. DICLOFENAC SODIUM [Suspect]
     Active Substance: DICLOFENAC SODIUM
     Indication: Arthralgia
  2. CELEBREX [Suspect]
     Active Substance: CELECOXIB
  3. LAMOTRIGINE [Concomitant]
     Active Substance: LAMOTRIGINE
  4. DICLOFENAC [Concomitant]
     Active Substance: DICLOFENAC
  5. AJOVY [Concomitant]
     Active Substance: FREMANEZUMAB-VFRM
  6. ADDERALL [Concomitant]
     Active Substance: AMPHETAMINE ASPARTATE\AMPHETAMINE SULFATE\DEXTROAMPHETAMINE SACCHARATE\DEXTROAMPHETAMINE SULFATE
  7. ALPRAZOLAM [Concomitant]
     Active Substance: ALPRAZOLAM
  8. LEXAPRO [Concomitant]
     Active Substance: ESCITALOPRAM OXALATE
  9. CELEBREX [Concomitant]
     Active Substance: CELECOXIB
  10. Daily Women^s Vitamin [Concomitant]
  11. VITAMIN D NOS [Concomitant]
     Active Substance: CHOLECALCIFEROL\ERGOCALCIFEROL
  12. MELATONIN [Concomitant]
     Active Substance: MELATONIN

REACTIONS (3)
  - Therapy change [None]
  - Asthenia [None]
  - Migraine with aura [None]

NARRATIVE: CASE EVENT DATE: 20241115
